FAERS Safety Report 12068996 (Version 1)
Quarter: 2016Q1

REPORT INFORMATION
  Report Type: Spontaneous
  Country: US (occurrence: US)
  Receive Date: 20160211
  Receipt Date: 20160211
  Transmission Date: 20160526
  Serious: No
  Sender: FDA-Public Use
  Company Number: US-HOSPIRA-2646454

PATIENT

DRUGS (1)
  1. DIAZEPAM. [Suspect]
     Active Substance: DIAZEPAM
     Indication: PRODUCT USED FOR UNKNOWN INDICATION
     Dosage: ONE TIME
     Route: 042
     Dates: start: 20141120, end: 20141120

REACTIONS (3)
  - No adverse event [None]
  - Product colour issue [Recovered/Resolved]
  - Poor quality drug administered [Recovered/Resolved]

NARRATIVE: CASE EVENT DATE: 20141120
